FAERS Safety Report 24721351 (Version 1)
Quarter: 2024Q4

REPORT INFORMATION
  Report Type: Spontaneous
  Country: US (occurrence: None)
  Receive Date: 20241210
  Receipt Date: 20241210
  Transmission Date: 20250115
  Serious: Yes (Hospitalization)
  Sender: Public
  Company Number: None

PATIENT
  Age: 69 Year
  Sex: Male

DRUGS (11)
  1. GAMUNEX-C [Suspect]
     Active Substance: HUMAN IMMUNOGLOBULIN G
     Dosage: OTHER FREQUENCY : EVERY28TO30;?
     Dates: start: 20180320
  2. ALBUTEROL SULFATE [Concomitant]
     Active Substance: ALBUTEROL SULFATE
  3. ALLOPURINOL TAB 300MG [Concomitant]
  4. BO POSIFLUSH [Concomitant]
  5. COLGRYS TAB 0.6MG [Concomitant]
  6. CYMBALTA GAP 30MG [Concomitant]
  7. FENOFIBRATE TAB 160MG [Concomitant]
  8. GAMUNEX-G [Concomitant]
  9. GLIPIZIDE [Concomitant]
     Active Substance: GLIPIZIDE
  10. LANSOPRAZOLE [Concomitant]
     Active Substance: LANSOPRAZOLE
  11. LASIX TAB 40MG [Concomitant]

REACTIONS (1)
  - Leg amputation [None]

NARRATIVE: CASE EVENT DATE: 20241114
